FAERS Safety Report 9227968 (Version 2)
Quarter: 2013Q2

REPORT INFORMATION
  Report Type: Spontaneous
  Country: US (occurrence: US)
  Receive Date: 20130412
  Receipt Date: 20130510
  Transmission Date: 20140414
  Serious: Yes (Hospitalization)
  Sender: FDA-Public Use
  Company Number: US-GILEAD-2013-0073235

PATIENT
  Sex: Female

DRUGS (1)
  1. LETAIRIS [Suspect]
     Indication: PRODUCT USED FOR UNKNOWN INDICATION
     Dosage: 10 MG, QD
     Dates: start: 20130115

REACTIONS (6)
  - Dehydration [Unknown]
  - Feeling abnormal [Unknown]
  - Diarrhoea [Unknown]
  - Fatigue [Unknown]
  - Increased upper airway secretion [Unknown]
  - Vomiting [Unknown]
